FAERS Safety Report 8788695 (Version 3)
Quarter: 2012Q4

REPORT INFORMATION
  Report Type: 
  Country: SE (occurrence: SE)
  Receive Date: 20120917
  Receipt Date: 20121101
  Transmission Date: 20130627
  Serious: Yes (Hospitalization, Other)
  Sender: FDA-Public Use
  Company Number: SE-AMGEN-SWESP2012058216

PATIENT
  Age: 52 Year
  Sex: Female

DRUGS (3)
  1. ENBREL [Suspect]
     Indication: PSORIASIS
     Dosage: UNK
     Dates: start: 200804, end: 201103
  2. SIMVASTATIN [Concomitant]
     Dosage: UNK
  3. PANODIL [Concomitant]
     Dosage: UNK

REACTIONS (5)
  - Cerebral disorder [Unknown]
  - Lumbar puncture abnormal [Unknown]
  - Central nervous system inflammation [Not Recovered/Not Resolved]
  - Polyneuropathy [Not Recovered/Not Resolved]
  - Demyelination [Unknown]
